FAERS Safety Report 23470018 (Version 1)
Quarter: 2024Q1

REPORT INFORMATION
  Report Type: Spontaneous
  Country: GB (occurrence: GB)
  Receive Date: 20240202
  Receipt Date: 20240202
  Transmission Date: 20240410
  Serious: Yes (Hospitalization, Other)
  Sender: FDA-Public Use
  Company Number: None

PATIENT

DRUGS (1)
  1. LEVETIRACETAM [Suspect]
     Active Substance: LEVETIRACETAM
     Indication: Epilepsy
     Dosage: 600 MILLIGRAM, BID
     Route: 065
     Dates: start: 202309, end: 20240117

REACTIONS (5)
  - Stevens-Johnson syndrome [Recovering/Resolving]
  - Ocular hyperaemia [Unknown]
  - Lip swelling [Unknown]
  - Oral pain [Unknown]
  - Rash [Unknown]

NARRATIVE: CASE EVENT DATE: 20230114
